FAERS Safety Report 10017179 (Version 1)
Quarter: 2014Q1

REPORT INFORMATION
  Report Type: Report from Study
  Country: US (occurrence: US)
  Receive Date: 20140318
  Receipt Date: 20140318
  Transmission Date: 20141002
  Serious: Yes (Hospitalization, Other)
  Sender: FDA-Public Use
  Company Number: US-ROCHE-1362866

PATIENT
  Age: 49 Year
  Sex: Female
  Weight: 59.47 kg

DRUGS (15)
  1. ACTEMRA [Suspect]
     Indication: RHEUMATOID ARTHRITIS
     Route: 042
     Dates: start: 201301
  2. ACTEMRA [Suspect]
     Route: 042
     Dates: start: 201306, end: 20131204
  3. CYMBALTA [Concomitant]
     Indication: FIBROMYALGIA
     Route: 065
  4. CYMBALTA [Concomitant]
     Indication: DEPRESSION
  5. HYDROXYCHLOROQUINE [Concomitant]
     Indication: RHEUMATOID ARTHRITIS
     Route: 065
  6. MONTELUKAST [Concomitant]
     Indication: HYPERSENSITIVITY
     Route: 065
  7. OMEPRAZOLE [Concomitant]
     Indication: GASTROOESOPHAGEAL REFLUX DISEASE
     Route: 065
  8. HYOSCYAMINE SULFATE [Concomitant]
     Indication: ABDOMINAL PAIN UPPER
     Route: 065
  9. TRAMADOL HCL [Concomitant]
     Indication: PAIN
     Route: 065
  10. ISOSORBIDE DINITRATE [Concomitant]
     Route: 065
  11. OXYCODONE/ACETAMINOPHEN [Concomitant]
     Indication: PAIN
     Dosage: 5/325
     Route: 065
  12. ADVAIR DISKUS [Concomitant]
     Indication: ASTHMA
     Dosage: 250 MG-50 I PUFF BID
     Route: 065
  13. FISH OIL [Concomitant]
  14. FOLIC ACID [Concomitant]
     Indication: FATIGUE
     Route: 065
  15. FOLIC ACID [Concomitant]
     Indication: FIBROMYALGIA

REACTIONS (12)
  - Thrombosis [Recovering/Resolving]
  - Pain in extremity [Unknown]
  - Back pain [Unknown]
  - Abdominal discomfort [Unknown]
  - Blood potassium decreased [Unknown]
  - Gastrointestinal inflammation [Unknown]
  - Gait disturbance [Unknown]
  - Oedema peripheral [Unknown]
  - Local swelling [Unknown]
  - Vision blurred [Unknown]
  - Fatigue [Unknown]
  - Impaired healing [Unknown]
